FAERS Safety Report 5694006-2 (Version None)
Quarter: 2008Q2

REPORT INFORMATION
  Report Type: 
  Country: None (occurrence: None)
  Receive Date: 20080403
  Receipt Date: 20080327
  Transmission Date: 20081010
  Serious: Yes (Hospitalization)
  Sender: FDA-Public Use
  Company Number: US-GILEAD-2008-0015887

PATIENT
  Sex: Female

DRUGS (6)
  1. LETAIRIS [Suspect]
     Indication: PULMONARY HYPERTENSION
     Route: 048
     Dates: start: 20080303
  2. WARFARIN SODIUM [Concomitant]
     Route: 048
  3. AMLODIPINE [Concomitant]
     Route: 048
  4. ENALAPRIL MALEATE [Concomitant]
     Route: 048
  5. NORTRIPTYLINE HCL [Concomitant]
     Route: 048
  6. TRAMADOL HCL [Concomitant]
     Route: 048

REACTIONS (2)
  - DYSPNOEA [None]
  - HEART RATE IRREGULAR [None]
